FAERS Safety Report 5371802-2 (Version None)
Quarter: 2007Q2

REPORT INFORMATION
  Report Type: 
  Country: None (occurrence: None)
  Receive Date: 20070625
  Receipt Date: 20070615
  Transmission Date: 20071010
  Serious: Yes (Other)
  Sender: FDA-Public Use
  Company Number: 2007SP012147

PATIENT
  Age: 35 Year
  Sex: Female

DRUGS (1)
  1. CLARITIN REDITABS [Suspect]
     Indication: DERMATITIS ATOPIC
     Dosage: 10 MG; PO
     Route: 048
     Dates: start: 20070501, end: 20070502

REACTIONS (2)
  - AGGRESSION [None]
  - CONFUSIONAL STATE [None]
